FAERS Safety Report 17120020 (Version 1)
Quarter: 2019Q4

REPORT INFORMATION
  Report Type: Spontaneous
  Country: GB (occurrence: GB)
  Receive Date: 20191206
  Receipt Date: 20191206
  Transmission Date: 20200122
  Serious: Yes (Other)
  Sender: FDA-Public Use
  Company Number: NVSC2019GB053686

PATIENT
  Sex: Female

DRUGS (1)
  1. GABAPENTIN. [Suspect]
     Active Substance: GABAPENTIN
     Indication: NEURALGIA
     Dosage: 100 MG, QD (STRENGTH: 100 MG, 3 TIMES A DAY)
     Route: 048

REACTIONS (4)
  - Memory impairment [Unknown]
  - Deafness [Unknown]
  - Feeling abnormal [Unknown]
  - Off label use [Unknown]
